FAERS Safety Report 17286062 (Version 1)
Quarter: 2020Q1

REPORT INFORMATION
  Report Type: Spontaneous
  Country: IT (occurrence: IT)
  Receive Date: 20200118
  Receipt Date: 20200118
  Transmission Date: 20200409
  Serious: Yes (Other)
  Sender: FDA-Public Use
  Company Number: IT-AUROBINDO-AUR-APL-2020-002690

PATIENT
  Age: 3 Year
  Sex: Male
  Weight: 15 kg

DRUGS (2)
  1. IBUPROFENE [Concomitant]
     Active Substance: IBUPROFEN
     Indication: EAR INFECTION
     Dosage: 1 DOSAGE FORM
     Route: 048
     Dates: start: 20191229, end: 20191229
  2. AMOXICILLIN. [Suspect]
     Active Substance: AMOXICILLIN
     Indication: EAR INFECTION
     Dosage: 1 DOSAGE FORM, CYCLICAL
     Route: 048
     Dates: start: 20191229, end: 20191229

REACTIONS (2)
  - Lip oedema [Recovering/Resolving]
  - Eye oedema [Recovering/Resolving]

NARRATIVE: CASE EVENT DATE: 20191229
